FAERS Safety Report 10077738 (Version 6)
Quarter: 2014Q4

REPORT INFORMATION
  Report Type: Spontaneous
  Country: US (occurrence: US)
  Receive Date: 20140414
  Receipt Date: 20141202
  Transmission Date: 20150528
  Serious: Yes (Other)
  Sender: FDA-Public Use
  Company Number: US-ELI_LILLY_AND_COMPANY-US201402001411

PATIENT
  Sex: Female

DRUGS (12)
  1. HUMALOG [Suspect]
     Active Substance: INSULIN LISPRO
     Dosage: 20 U, EACH EVENING
     Route: 065
  2. HUMALOG [Suspect]
     Active Substance: INSULIN LISPRO
     Dosage: UNK, UNKNOWN
  3. HUMALOG [Suspect]
     Active Substance: INSULIN LISPRO
     Dosage: 12-19 UNITS TID
  4. LANTUS [Concomitant]
     Active Substance: INSULIN GLARGINE
     Indication: PRODUCT USED FOR UNKNOWN INDICATION
     Dosage: UNK, UNKNOWN
     Route: 065
  5. SYMLIN [Concomitant]
     Active Substance: PRAMLINTIDE ACETATE
     Dosage: UNK
     Dates: start: 201404
  6. HUMALOG [Suspect]
     Active Substance: INSULIN LISPRO
     Indication: TYPE 2 DIABETES MELLITUS
     Dosage: 12 U, BID
     Route: 065
     Dates: start: 20090106
  7. HUMALOG [Suspect]
     Active Substance: INSULIN LISPRO
     Dosage: 7 U, UNKNOWN
     Route: 065
     Dates: start: 2008
  8. HUMALOG [Suspect]
     Active Substance: INSULIN LISPRO
     Dosage: 7 U, UNKNOWN
     Route: 065
     Dates: start: 2008
  9. HUMALOG [Suspect]
     Active Substance: INSULIN LISPRO
     Dosage: 7 TO 10 U, PRN
     Route: 065
     Dates: start: 2008
  10. HUMALOG [Suspect]
     Active Substance: INSULIN LISPRO
     Dosage: 12-14-20 TID
     Route: 065
  11. HUMALOG [Suspect]
     Active Substance: INSULIN LISPRO
     Dosage: 12-14-20 TID
     Route: 065
  12. NORVASC [Concomitant]
     Active Substance: AMLODIPINE BESYLATE

REACTIONS (11)
  - Drug ineffective [Recovered/Resolved]
  - Abdominal pain upper [Unknown]
  - Visual impairment [Unknown]
  - Blood glucose increased [Recovered/Resolved]
  - Blood potassium decreased [Unknown]
  - Weight increased [Unknown]
  - Thirst [Unknown]
  - Thyroid disorder [Unknown]
  - Glycosylated haemoglobin increased [Unknown]
  - Hypoglycaemia [Unknown]
  - Abdominal distension [Unknown]
